FAERS Safety Report 18231450 (Version 1)
Quarter: 2020Q3

REPORT INFORMATION
  Report Type: Spontaneous
  Country: US (occurrence: US)
  Receive Date: 20200904
  Receipt Date: 20200904
  Transmission Date: 20201103
  Serious: No
  Sender: FDA-Public Use
  Company Number: US-CIPLA LTD.-2020US03038

PATIENT

DRUGS (5)
  1. OMEPRAZOLE. [Interacting]
     Active Substance: OMEPRAZOLE
     Indication: ABDOMINAL PAIN UPPER
     Dosage: 20 MILLIGRAM, QD (ONCE A DAY), ONE TABLET EVERY DAY BEFORE BREAKFAST
     Route: 065
  2. ALENDRONATE [Suspect]
     Active Substance: ALENDRONATE SODIUM
     Indication: OSTEOPOROSIS PROPHYLAXIS
     Dosage: 70 MILLIGRAM, ONCE A WEEK
     Route: 048
  3. IRBESARTAN. [Concomitant]
     Active Substance: IRBESARTAN
     Indication: BLOOD PRESSURE ABNORMAL
     Dosage: 300 MILLIGRAM, QD (ONCE A DAY)
     Route: 065
     Dates: start: 2019
  4. ALENDRONATE [Interacting]
     Active Substance: ALENDRONATE SODIUM
     Dosage: 70 MILLIGRAM, (ONE TABLET EVERY WEEK), EVERY SUNDAY AT 05.30 HRS IN THE MORNING)
     Route: 048
     Dates: start: 20200112
  5. HYDROCHLOROTHIAZIDE. [Concomitant]
     Active Substance: HYDROCHLOROTHIAZIDE
     Indication: BLOOD PRESSURE ABNORMAL
     Dosage: 12.5 MILLIGRAM, QD (ONCE A DAY)
     Route: 065
     Dates: start: 2019

REACTIONS (4)
  - Musculoskeletal chest pain [Recovering/Resolving]
  - Abdominal pain upper [Recovered/Resolved]
  - Drug interaction [Unknown]
  - Alopecia [Not Recovered/Not Resolved]

NARRATIVE: CASE EVENT DATE: 20200112
